FAERS Safety Report 5389864-5 (Version None)
Quarter: 2007Q3

REPORT INFORMATION
  Report Type: 
  Country: None (occurrence: None)
  Receive Date: 20070718
  Receipt Date: 20070710
  Transmission Date: 20080115
  Serious: Yes (Other)
  Sender: FDA-Public Use
  Company Number: PHBS2007JP11734

PATIENT

DRUGS (2)
  1. FENTANYL [Concomitant]
     Route: 062
  2. RITALIN [Suspect]
     Dosage: 20 MG/DAY
     Route: 048

REACTIONS (2)
  - DELIRIUM [None]
  - HALLUCINATION [None]
